FAERS Safety Report 5940589-4 (Version None)
Quarter: 2008Q4

REPORT INFORMATION
  Report Type: 
  Country: None (occurrence: None)
  Receive Date: 20081103
  Receipt Date: 20081103
  Transmission Date: 20090506
  Serious: No
  Sender: FDA-Public Use
  Company Number: None

PATIENT
  Sex: Female
  Weight: 46.8112 kg

DRUGS (2)
  1. ZOLOFT [Suspect]
     Indication: ANXIETY
     Dosage: SERTRALINE 100MG QD PO
     Route: 048
     Dates: start: 20080911, end: 20081001
  2. ZOLOFT [Suspect]
     Indication: DEPRESSION
     Dosage: SERTRALINE 100MG QD PO
     Route: 048
     Dates: start: 20080911, end: 20081001

REACTIONS (4)
  - DIZZINESS [None]
  - FORMICATION [None]
  - IRRITABILITY [None]
  - PRODUCT QUALITY ISSUE [None]
